FAERS Safety Report 5217898-X (Version None)
Quarter: 2007Q1

REPORT INFORMATION
  Report Type: 
  Country: None (occurrence: None)
  Receive Date: 20070124
  Receipt Date: 20070115
  Transmission Date: 20070707
  Serious: Yes (Death)
  Sender: FDA-Public Use
  Company Number: US-ABBOTT-06P-163-0338149-00

PATIENT
  Sex: Female
  Weight: 61.29 kg

DRUGS (18)
  1. HUMIRA [Suspect]
     Indication: RHEUMATOID ARTHRITIS
     Route: 058
     Dates: start: 20030901
  2. HUMIRA [Suspect]
     Dates: start: 20060201
  3. PREDNISONE TAB [Concomitant]
     Indication: RHEUMATOID ARTHRITIS
     Dates: start: 20051021
  4. NYSTATIN [Concomitant]
     Indication: DRUG USE FOR UNKNOWN INDICATION
     Route: 048
     Dates: start: 20051021, end: 20051026
  5. GLIMEPIRIDE [Concomitant]
     Indication: DIABETES MELLITUS
     Dates: start: 20051021
  6. FUROSEMIDE [Concomitant]
     Indication: DIURETIC THERAPY
     Dates: start: 20051021
  7. FUROSEMIDE [Concomitant]
     Indication: PULMONARY OEDEMA
  8. LISINOPRIL [Concomitant]
     Indication: DRUG USE FOR UNKNOWN INDICATION
     Dates: start: 20051021
  9. RISPERIDONE [Concomitant]
     Indication: SCHIZOPHRENIA
     Dates: start: 20051021
  10. RISPERIDONE [Concomitant]
     Indication: PSYCHOTIC DISORDER
  11. LOXAPINE [Concomitant]
     Indication: DRUG USE FOR UNKNOWN INDICATION
     Dates: start: 20051021
  12. METOPROLOL SUCCINATE [Concomitant]
     Indication: DRUG USE FOR UNKNOWN INDICATION
     Dates: start: 20051021
  13. HYDROXYCHLOROQUINE PHOSPHATE [Concomitant]
     Indication: RHEUMATOID ARTHRITIS
     Dates: start: 20051021
  14. COMBIVENT [Concomitant]
     Indication: CHRONIC OBSTRUCTIVE PULMONARY DISEASE
     Route: 055
     Dates: start: 20051021
  15. PROPACET 100 [Concomitant]
     Indication: PAIN
     Dates: start: 20051021
  16. BISACODYL [Concomitant]
     Indication: CONSTIPATION
     Dates: start: 20051021
  17. ARTHROTEC [Concomitant]
     Indication: ARTHRITIS
     Dates: start: 20051021
  18. PANTOPRAZOLE SODIUM [Concomitant]
     Indication: GASTROOESOPHAGEAL REFLUX DISEASE
     Dates: start: 20051021

REACTIONS (4)
  - DECUBITUS ULCER [None]
  - JOINT SWELLING [None]
  - OPEN WOUND [None]
  - SKIN ULCER [None]
